FAERS Safety Report 16943571 (Version 4)
Quarter: 2020Q3

REPORT INFORMATION
  Report Type: Report from Study
  Country: US (occurrence: US)
  Receive Date: 20191022
  Receipt Date: 20200731
  Transmission Date: 20201102
  Serious: Yes (Death, Other)
  Sender: FDA-Public Use
  Company Number: US-ACADIA PHARMACEUTICALS INC.-ACA-2019-014450

PATIENT
  Age: 76 Year
  Sex: Male

DRUGS (1)
  1. NUPLAZID [Suspect]
     Active Substance: PIMAVANSERIN TARTRATE
     Indication: PARKINSON^S DISEASE
     Dosage: 34 MG, QD
     Route: 048

REACTIONS (4)
  - Fall [Unknown]
  - Failure to thrive [Recovered/Resolved]
  - Skin abrasion [Unknown]
  - Dementia [Recovered/Resolved]

NARRATIVE: CASE EVENT DATE: 20190815
